FAERS Safety Report 5723153-1 (Version None)
Quarter: 2008Q2

REPORT INFORMATION
  Report Type: 
  Country: None (occurrence: None)
  Receive Date: 20080425
  Receipt Date: 20080411
  Transmission Date: 20081010
  Serious: Yes (Other)
  Sender: FDA-Public Use
  Company Number: THYR-1000037

PATIENT
  Age: 58 Year
  Sex: Female
  Weight: 69 kg

DRUGS (4)
  1. THYROGEN [Suspect]
     Indication: SCAN THYROID GLAND
     Dosage: 0.9 MG/ML, INTRAMUSCULAR
     Route: 030
     Dates: start: 20080310, end: 20080311
  2. LEVOTHYROXINE SODIUM [Concomitant]
  3. ALOPAM (OXAZEPAM) [Concomitant]
  4. PANODIL (PARACETAMOL) PROLONGED-RELEASE TABLET [Concomitant]

REACTIONS (13)
  - ARTHRALGIA [None]
  - BOWEL MOVEMENT IRREGULARITY [None]
  - DIZZINESS [None]
  - DYSPNOEA [None]
  - FATIGUE [None]
  - FEELING HOT [None]
  - HEADACHE [None]
  - MUSCLE RIGIDITY [None]
  - MYALGIA [None]
  - PAIN [None]
  - PALPITATIONS [None]
  - PARAESTHESIA [None]
  - TREMOR [None]
